FAERS Safety Report 10365542 (Version 2)
Quarter: 2014Q3

REPORT INFORMATION
  Report Type: Spontaneous
  Country: JP (occurrence: JP)
  Receive Date: 20140806
  Receipt Date: 20140814
  Transmission Date: 20150326
  Serious: Yes (Other)
  Sender: FDA-Public Use
  Company Number: JP-MERCK-1408JPN002837

PATIENT
  Age: 49 Year
  Sex: Male
  Weight: 34 kg

DRUGS (3)
  1. SITAGLIPTIN PHOSPHATE [Suspect]
     Active Substance: SITAGLIPTIN PHOSPHATE
     Dosage: 50 MG, IN THE MORNING AND 1 TABLET AT NOON
     Route: 048
     Dates: start: 20140801, end: 20140801
  2. EL-3 [Suspect]
     Active Substance: DEXTROSE\POTASSIUM CHLORIDE\POTASSIUM PHOSPHATE, DIBASIC\POTASSIUM PHOSPHATE, MONOBASIC\SODIUM CHLORIDE\SODIUM LACTATE
     Dosage: 500 ML, UNK
     Route: 042
  3. SITAGLIPTIN PHOSPHATE [Suspect]
     Active Substance: SITAGLIPTIN PHOSPHATE
     Indication: TYPE 2 DIABETES MELLITUS
     Dosage: 50 MG, ONCE A DAY, IN THE MORNING
     Route: 048

REACTIONS (3)
  - Medication error [Unknown]
  - Blood glucose increased [Recovered/Resolved]
  - Hypoglycaemia [Recovered/Resolved]

NARRATIVE: CASE EVENT DATE: 20140801
